FAERS Safety Report 18352736 (Version 3)
Quarter: 2021Q1

REPORT INFORMATION
  Report Type: Report from Study
  Country: None (occurrence: NL)
  Receive Date: 20201007
  Receipt Date: 20210204
  Transmission Date: 20210419
  Serious: Yes (Other)
  Sender: FDA-Public Use
  Company Number: NL-ABBVIE-20K-114-3560472-00

PATIENT
  Sex: Male

DRUGS (3)
  1. LEVODOPA/CARBIDOPA [Suspect]
     Active Substance: CARBIDOPA\LEVODOPA
     Indication: PARKINSON^S DISEASE
     Dosage: USES 1 CASSETTE
     Route: 050
     Dates: start: 20200831
  2. LEVODOPA/CARBIDOPA [Concomitant]
     Active Substance: CARBIDOPA\LEVODOPA
     Indication: PARKINSON^S DISEASE
     Dosage: RETARD
     Route: 048
     Dates: start: 20191021
  3. LEVODOPA/CARBIDOPA [Suspect]
     Active Substance: CARBIDOPA\LEVODOPA

REACTIONS (28)
  - Neck pain [Not Recovered/Not Resolved]
  - On and off phenomenon [Recovering/Resolving]
  - Hallucination [Not Recovered/Not Resolved]
  - Adverse drug reaction [Not Recovered/Not Resolved]
  - Musculoskeletal disorder [Not Recovered/Not Resolved]
  - Mobility decreased [Not Recovered/Not Resolved]
  - Impaired self-care [Not Recovered/Not Resolved]
  - Unevaluable event [Recovered/Resolved]
  - Dyskinesia [Not Recovered/Not Resolved]
  - Hypophagia [Not Recovered/Not Resolved]
  - Fibroma [Recovered/Resolved]
  - Dysstasia [Not Recovered/Not Resolved]
  - Feeling of despair [Not Recovered/Not Resolved]
  - Pain in extremity [Not Recovered/Not Resolved]
  - Bradykinesia [Not Recovered/Not Resolved]
  - Intervertebral disc protrusion [Not Recovered/Not Resolved]
  - Nerve compression [Not Recovered/Not Resolved]
  - Speech disorder [Not Recovered/Not Resolved]
  - Posture abnormal [Not Recovered/Not Resolved]
  - General physical health deterioration [Not Recovered/Not Resolved]
  - Personality disorder [Not Recovered/Not Resolved]
  - Paraesthesia [Not Recovered/Not Resolved]
  - Muscle rigidity [Not Recovered/Not Resolved]
  - Stoma site irritation [Recovered/Resolved]
  - Somnolence [Not Recovered/Not Resolved]
  - Weight decreased [Not Recovered/Not Resolved]
  - Feeling abnormal [Not Recovered/Not Resolved]
  - Quality of life decreased [Unknown]

NARRATIVE: CASE EVENT DATE: 2020
